FAERS Safety Report 9519150 (Version 2)
Quarter: 2013Q3

REPORT INFORMATION
  Report Type: Spontaneous
  Country: BR (occurrence: BR)
  Receive Date: 20130912
  Receipt Date: 20130927
  Transmission Date: 20140515
  Serious: Yes (Death)
  Sender: FDA-Public Use
  Company Number: BR-ELI_LILLY_AND_COMPANY-BR201309002344

PATIENT
  Age: 78 Year
  Sex: Female

DRUGS (5)
  1. ZYPREXA [Suspect]
     Dosage: UNK, UNKNOWN
     Route: 065
  2. NATRILIX                           /00340101/ [Concomitant]
     Dosage: UNK, UNKNOWN
     Route: 065
  3. SERTRALINE                         /01011402/ [Concomitant]
     Dosage: UNK, UNKNOWN
     Route: 065
  4. JANUMET [Concomitant]
     Dosage: UNK, UNKNOWN
     Route: 065
  5. VALERIANA OFFICINALIS [Concomitant]
     Dosage: UNK, UNKNOWN
     Route: 065

REACTIONS (1)
  - Death [Fatal]
